FAERS Safety Report 8837943 (Version 1)
Quarter: 2012Q4

REPORT INFORMATION
  Report Type: 
  Country: US (occurrence: US)
  Receive Date: 20121012
  Receipt Date: 20121012
  Transmission Date: 20130627
  Serious: Yes (Hospitalization)
  Sender: FDA-Public Use
  Company Number: US-SHIRE-ALL1-2012-04885

PATIENT
  Sex: Male
  Weight: 58.96 kg

DRUGS (5)
  1. LIALDA [Suspect]
     Indication: PROCTITIS
     Dosage: 2.4 g, (two 1.2 g tablets)1x/day:qd
     Route: 048
     Dates: start: 2010
  2. LIALDA [Suspect]
     Indication: COLITIS
     Dosage: 1.2 g, 1x/day:qd
     Route: 048
     Dates: end: 201109
  3. LIALDA [Suspect]
     Dosage: 3.6 g, (three 1.2 g tablets) 1x/day:qd
     Route: 048
     Dates: start: 201109, end: 201205
  4. LIALDA [Suspect]
     Dosage: 4.8 g, (four 1.2 g tablets) 1x/day:qd
     Route: 048
     Dates: start: 201205
  5. CANASA [Concomitant]
     Indication: PRODUCT USED FOR UNKNOWN INDICATION
     Dosage: 0.5 DF, 1x/day:qd
     Route: 054
     Dates: start: 201109, end: 201205

REACTIONS (4)
  - Clostridium difficile infection [Recovered/Resolved]
  - Colitis [Recovered/Resolved]
  - Irritable bowel syndrome [Unknown]
  - Eczema nummular [Not Recovered/Not Resolved]
